FAERS Safety Report 9494880 (Version 1)
Quarter: 2013Q3

REPORT INFORMATION
  Report Type: Spontaneous
  Country: US (occurrence: US)
  Receive Date: 20130903
  Receipt Date: 20130903
  Transmission Date: 20140515
  Serious: No
  Sender: FDA-Public Use
  Company Number: US-009507513-1308USA007189

PATIENT
  Sex: Female

DRUGS (4)
  1. PROVENTIL [Suspect]
     Indication: INHALATION THERAPY
     Dosage: 2 PUFFS 4 TIMES DAILY, PRN
     Route: 048
     Dates: start: 2012
  2. EVISTA [Concomitant]
  3. SYMBICORT [Concomitant]
  4. WELCHOL [Concomitant]

REACTIONS (3)
  - Chest discomfort [Not Recovered/Not Resolved]
  - Product quality issue [Unknown]
  - Drug dose omission [Unknown]
